FAERS Safety Report 12834271 (Version 2)
Quarter: 2016Q4

REPORT INFORMATION
  Report Type: Report from Study
  Country: None (occurrence: FR)
  Receive Date: 20161010
  Receipt Date: 20161025
  Transmission Date: 20170207
  Serious: Yes (Other)
  Sender: FDA-Public Use
  Company Number: FR-ABBVIE-16P-056-1538480-00

PATIENT
  Age: 31 Year
  Sex: Female

DRUGS (18)
  1. FIVASA [Concomitant]
     Active Substance: MESALAMINE
     Route: 048
     Dates: start: 20151015, end: 20160530
  2. FIVASA [Concomitant]
     Active Substance: MESALAMINE
     Route: 048
     Dates: start: 20160531
  3. ZYMA D [Concomitant]
     Indication: PROPHYLAXIS
     Route: 048
     Dates: start: 20140414, end: 201510
  4. HUMIRA [Suspect]
     Active Substance: ADALIMUMAB
     Route: 058
     Dates: start: 20130506
  5. HUMIRA [Suspect]
     Active Substance: ADALIMUMAB
     Route: 058
     Dates: start: 20150513, end: 201604
  6. FIVASA [Concomitant]
     Active Substance: MESALAMINE
     Route: 048
     Dates: start: 20130807, end: 20150423
  7. ACIDE FOLIQUE [Concomitant]
     Active Substance: FOLIC ACID
     Indication: PROPHYLAXIS
     Route: 048
     Dates: start: 201511
  8. FIVASA [Concomitant]
     Active Substance: MESALAMINE
     Route: 048
     Dates: start: 20150424, end: 20151014
  9. FIVASA [Concomitant]
     Active Substance: MESALAMINE
     Route: 054
     Dates: start: 20160531
  10. UVEDOSE [Concomitant]
     Active Substance: CHOLECALCIFEROL
     Indication: PROPHYLAXIS
     Route: 048
     Dates: start: 20161004
  11. HUMIRA [Suspect]
     Active Substance: ADALIMUMAB
     Indication: COLITIS ULCERATIVE
     Route: 030
     Dates: start: 20101117, end: 2012
  12. HUMIRA [Suspect]
     Active Substance: ADALIMUMAB
     Route: 058
     Dates: start: 201608
  13. FIVASA [Concomitant]
     Active Substance: MESALAMINE
     Indication: COLITIS ULCERATIVE
     Dosage: 3200 HIGHEST MAINTAINED DOSE
     Route: 048
     Dates: start: 20030812, end: 20130806
  14. FIVASA [Concomitant]
     Active Substance: MESALAMINE
     Route: 054
     Dates: start: 20150522, end: 201506
  15. OLIGOZINC [Concomitant]
     Indication: PROPHYLAXIS
     Route: 048
     Dates: start: 20140414, end: 20150323
  16. UVEDOSE [Concomitant]
     Active Substance: CHOLECALCIFEROL
     Indication: VITAMIN D DEFICIENCY
     Route: 048
     Dates: start: 20160114, end: 20161004
  17. HUMIRA [Suspect]
     Active Substance: ADALIMUMAB
     Route: 058
     Dates: start: 20141224, end: 20150429
  18. FIVASA [Concomitant]
     Active Substance: MESALAMINE
     Route: 054
     Dates: start: 20060112, end: 20080220

REACTIONS (2)
  - Exposure during pregnancy [Unknown]
  - Uterine injury [Unknown]

NARRATIVE: CASE EVENT DATE: 20160714
